FAERS Safety Report 5605185-7 (Version None)
Quarter: 2008Q1

REPORT INFORMATION
  Report Type: 
  Country: None (occurrence: None)
  Receive Date: 20080124
  Receipt Date: 20080118
  Transmission Date: 20080703
  Serious: Yes (Other)
  Sender: FDA-Public Use
  Company Number: 2008SP001600

PATIENT
  Sex: Female

DRUGS (2)
  1. RIBAVIRIN [Suspect]
     Indication: HEPATITIS C
     Dosage: PO
     Route: 048
     Dates: start: 19930101, end: 19930101
  2. INTERFERON (MANUFACTURER UNKNOWN) [Suspect]
     Dosage: TIW
     Dates: start: 19930101, end: 19930101

REACTIONS (2)
  - DEHYDRATION [None]
  - DRUG INEFFECTIVE [None]
